FAERS Safety Report 18724093 (Version 1)
Quarter: 2021Q1

REPORT INFORMATION
  Report Type: Spontaneous
  Country: US (occurrence: US)
  Receive Date: 20210109
  Receipt Date: 20210109
  Transmission Date: 20210419
  Serious: Yes (Death, Hospitalization)
  Sender: FDA-Public Use
  Company Number: None

PATIENT
  Age: 84 Year
  Sex: Male

DRUGS (8)
  1. REVLIMID [Suspect]
     Active Substance: LENALIDOMIDE
     Indication: PLASMA CELL MYELOMA
     Dosage: ?          OTHER FREQUENCY:QD X21/2BD;?
     Route: 048
     Dates: start: 20150610, end: 20200817
  2. ATORVASTATIN [Concomitant]
     Active Substance: ATORVASTATIN
  3. LEVOTHYROXINE. [Concomitant]
     Active Substance: LEVOTHYROXINE
  4. TAMSULOSIN [Concomitant]
     Active Substance: TAMSULOSIN
  5. LATANOPROST OPTH DROPS [Concomitant]
  6. FUROSEMIDE. [Concomitant]
     Active Substance: FUROSEMIDE
  7. ACYCLOVIR. [Concomitant]
     Active Substance: ACYCLOVIR
  8. MORPHIONE [Concomitant]

REACTIONS (5)
  - Respiratory failure [None]
  - Atrioventricular block [None]
  - Acute left ventricular failure [None]
  - Bradycardia [None]
  - Aortic stenosis [None]

NARRATIVE: CASE EVENT DATE: 20200926
